FAERS Safety Report 17608346 (Version 3)
Quarter: 2020Q2

REPORT INFORMATION
  Report Type: Spontaneous
  Country: US (occurrence: US)
  Receive Date: 20200331
  Receipt Date: 20200504
  Transmission Date: 20200713
  Serious: No
  Sender: FDA-Public Use
  Company Number: US-LEXICON PHARMACEUTICALS, INC-20-1606-00235

PATIENT
  Age: 79 Year
  Sex: Male

DRUGS (3)
  1. LANREOTIDE [Concomitant]
     Active Substance: LANREOTIDE
  2. XERMELO [Suspect]
     Active Substance: TELOTRISTAT ETHYL
     Dates: start: 20190829
  3. PROBIOTIC [Concomitant]
     Active Substance: PROBIOTICS NOS

REACTIONS (2)
  - Off label use [Not Recovered/Not Resolved]
  - Limb injury [Unknown]
